FAERS Safety Report 8582093-3 (Version None)
Quarter: 2012Q3

REPORT INFORMATION
  Report Type: 
  Country: None (occurrence: None)
  Receive Date: 20120809
  Receipt Date: 20120731
  Transmission Date: 20120928
  Serious: Yes (Death)
  Sender: FDA-Public Use
  Company Number: JP-PFIZER INC-2012191112

PATIENT
  Age: 73 Year
  Sex: Female

DRUGS (25)
  1. AMIODARONE HCL [Suspect]
     Dosage: 750 MG (33 MG/HR) FOR 6 HOURS
     Route: 041
  2. AMIODARONE HCL [Suspect]
     Dosage: 200 MG TWICE A DAY
     Route: 048
     Dates: start: 20120406, end: 20120413
  3. AMIODARONE HCL [Suspect]
     Dosage: 100 MG TWICE A DAY
     Route: 048
     Dates: start: 20120426, end: 20120505
  4. GLYCYRON [Concomitant]
     Dosage: UNK
  5. ASPIRIN [Concomitant]
     Dosage: UNK
  6. AMIODARONE HCL [Suspect]
     Dosage: UNK
     Route: 041
     Dates: end: 20120425
  7. FAMOTIDINE [Concomitant]
     Dosage: UNK
  8. AMIODARONE HCL [Suspect]
     Indication: ATRIAL FIBRILLATION
     Dosage: UNK
     Route: 065
     Dates: start: 20120321, end: 20120327
  9. AMIODARONE HCL [Suspect]
     Indication: ATRIAL FIBRILLATION
     Dosage: 125 MG, DAILY FOR 10 MINUTES
     Route: 041
     Dates: start: 20120418
  10. AMIODARONE HCL [Suspect]
     Dosage: 750 MG DAILY (17 MG/HR) FOR 12 HOURS
     Route: 041
  11. AMIODARONE HCL [Suspect]
     Dosage: 300 MG TO 500 MG (17 MG/HR)
     Route: 041
     Dates: end: 20120425
  12. URSO 250 [Concomitant]
     Dosage: UNK
  13. RISPERDAL [Concomitant]
     Dosage: UNK
  14. SIGMART [Concomitant]
     Dosage: UNK
  15. DIGOXIN [Concomitant]
     Dosage: UNK
  16. BISOPROLOL FUMARATE [Concomitant]
     Dosage: UNK
  17. DEPAS [Concomitant]
     Dosage: UNK
  18. MUCOSOLVAN [Concomitant]
     Dosage: UNK
  19. WARFARIN [Concomitant]
     Dosage: UNK
  20. ALDACTONE [Concomitant]
     Dosage: UNK
  21. AMIODARONE HCL [Suspect]
     Dosage: 100 MG TWICE A DAY
     Route: 048
     Dates: start: 20120414, end: 20120416
  22. FLAGYL [Concomitant]
     Dosage: UNK
  23. LASIX [Concomitant]
     Dosage: UNK
  24. GLUCONSAN K [Concomitant]
     Dosage: UNK
  25. LEVOFLOXACIN [Concomitant]
     Dosage: UNK

REACTIONS (4)
  - INFECTION [None]
  - CARDIAC FAILURE [None]
  - INTERSTITIAL LUNG DISEASE [None]
  - PULMONARY SEPSIS [None]
